FAERS Safety Report 12317007 (Version 1)
Quarter: 2016Q2

REPORT INFORMATION
  Report Type: Spontaneous
  Country: None (occurrence: None)
  Receive Date: 20160428
  Receipt Date: 20160428
  Transmission Date: 20160815
  Serious: No
  Sender: FDA-Public Use
  Company Number: None

PATIENT
  Sex: Male

DRUGS (2)
  1. LISINOPRIL. [Suspect]
     Active Substance: LISINOPRIL
  2. GLYBURIDE. [Suspect]
     Active Substance: GLYBURIDE

REACTIONS (3)
  - Hypoaesthesia [None]
  - Blood glucose increased [None]
  - Blood glucose decreased [None]
